FAERS Safety Report 17322964 (Version 1)
Quarter: 2020Q1

REPORT INFORMATION
  Report Type: Spontaneous
  Country: US (occurrence: US)
  Receive Date: 20200127
  Receipt Date: 20200127
  Transmission Date: 20200409
  Serious: Yes (Other)
  Sender: FDA-Public Use
  Company Number: US-BRISTOL-MYERS SQUIBB COMPANY-BMS-2020-005533

PATIENT
  Sex: Male
  Weight: 97.07 kg

DRUGS (1)
  1. ELIQUIS [Suspect]
     Active Substance: APIXABAN
     Indication: DEEP VEIN THROMBOSIS
     Dosage: . MILLIGRAM, BID
     Route: 048
     Dates: start: 2018

REACTIONS (5)
  - Haemorrhage [Recovered/Resolved]
  - Contusion [Recovered/Resolved]
  - Pericardial effusion [Recovered/Resolved]
  - Metastases to bone [Recovered/Resolved]
  - Swelling [Recovered/Resolved]
